FAERS Safety Report 4784937-X (Version None)
Quarter: 2005Q3

REPORT INFORMATION
  Report Type: 
  Country: None (occurrence: None)
  Receive Date: 20050928
  Receipt Date: 20050914
  Transmission Date: 20060218
  Serious: Yes (Hospitalization, Other)
  Sender: FDA-Public Use
  Company Number: US_0503113730

PATIENT
  Age: 48 Year
  Sex: Female
  Weight: 136 kg

DRUGS (22)
  1. ZYPREXA [Suspect]
     Indication: ANXIETY
     Dosage: 120 MG AT BEDTIME
     Route: 048
     Dates: start: 19970416, end: 20020428
  2. PROZAC [Concomitant]
     Route: 048
  3. PREMARIN [Concomitant]
  4. CLONAZEPAM [Concomitant]
  5. DIVALPROEX (VALPROATE SEMISODIUM) [Concomitant]
  6. CEPHALEXIN [Concomitant]
  7. ACETAMINOPHEN W/HYDROCODONE [Concomitant]
  8. CLONIDINE [Concomitant]
  9. TRAZADONE (TRAZODONE) [Concomitant]
  10. DIPHENOXYLATE W/ATROPINE SULFATE [Concomitant]
  11. ALPRAZOLAN [Concomitant]
  12. GABAPENTIN [Concomitant]
  13. CITALOPRAM [Concomitant]
  14. PREDNISONE [Concomitant]
  15. PANCREASE (PANCRELIPASE) [Concomitant]
  16. DETROL LA [Concomitant]
  17. ATORVASTATIN [Concomitant]
  18. ZIPRASIDONE [Concomitant]
  19. THYROID TAB [Concomitant]
  20. QUETIAPINE FUMARATE [Concomitant]
  21. BUPROPION [Concomitant]
  22. ZOLPIDEM TARTRATE [Concomitant]

REACTIONS (26)
  - APHASIA [None]
  - BILIARY COLIC [None]
  - BLOOD CHOLESTEROL INCREASED [None]
  - BLOOD GLUCOSE DECREASED [None]
  - BLOOD TRIGLYCERIDES INCREASED [None]
  - CARDIO-RESPIRATORY ARREST [None]
  - CHOLELITHIASIS [None]
  - DIABETES MELLITUS [None]
  - GLYCOSYLATED HAEMOGLOBIN INCREASED [None]
  - HALLUCINATION, AUDITORY [None]
  - HEPATIC NECROSIS [None]
  - HEPATIC STEATOSIS [None]
  - HYPOALBUMINAEMIA [None]
  - LIVER DISORDER [None]
  - LOSS OF CONSCIOUSNESS [None]
  - LOW DENSITY LIPOPROTEIN INCREASED [None]
  - LYMPHOCYTE PERCENTAGE DECREASED [None]
  - MICTURITION URGENCY [None]
  - NEUTROPHIL COUNT INCREASED [None]
  - NODAL RHYTHM [None]
  - PANCREATITIS [None]
  - PANIC ATTACK [None]
  - PLATELET COUNT DECREASED [None]
  - SLEEP DISORDER [None]
  - URGE INCONTINENCE [None]
  - WEIGHT INCREASED [None]
